FAERS Safety Report 8037023-X (Version None)
Quarter: 2012Q1

REPORT INFORMATION
  Report Type: 
  Country: None (occurrence: None)
  Receive Date: 20120111
  Receipt Date: 20120104
  Transmission Date: 20120608
  Serious: Yes (Hospitalization, Other)
  Sender: FDA-Public Use
  Company Number: US-BAYER-2011-049719

PATIENT
  Age: 36 Year
  Sex: Female
  Weight: 81.633 kg

DRUGS (3)
  1. YAZ [Suspect]
     Indication: ORAL CONTRACEPTION
     Dosage: UNK
     Dates: start: 20080801
  2. YASMIN [Suspect]
     Indication: ORAL CONTRACEPTION
     Dosage: UNK
     Dates: start: 20080801
  3. AMBIEN [Concomitant]
     Dosage: 5 MG, PRN
     Route: 048

REACTIONS (11)
  - ANXIETY [None]
  - PSYCHOLOGICAL TRAUMA [None]
  - DYSPEPSIA [None]
  - EMOTIONAL DISTRESS [None]
  - PAIN [None]
  - INJURY [None]
  - BILE DUCT STONE [None]
  - GALLBLADDER DISORDER [None]
  - FEAR [None]
  - CHOLECYSTITIS ACUTE [None]
  - ABDOMINAL PAIN [None]
